FAERS Safety Report 9281089 (Version 1)
Quarter: 2013Q2

REPORT INFORMATION
  Report Type: Spontaneous
  Country: US (occurrence: None)
  Receive Date: 20130508
  Receipt Date: 20130508
  Transmission Date: 20140414
  Serious: Yes (Life-Threatening, Hospitalization)
  Sender: FDA-Public Use
  Company Number: None

PATIENT
  Age: 18 Year
  Sex: Female
  Weight: 54.43 kg

DRUGS (1)
  1. DROSPIRENONE/ETHINYLESTRADIOL [Suspect]
     Indication: DYSFUNCTIONAL UTERINE BLEEDING
     Dosage: 3-20 MCH DAILY ORAL
     Route: 048

REACTIONS (2)
  - Pulmonary embolism [None]
  - Palpitations [None]
